FAERS Safety Report 22305982 (Version 3)
Quarter: 2023Q2

REPORT INFORMATION
  Report Type: Report from Study
  Country: EG (occurrence: EG)
  Receive Date: 20230511
  Receipt Date: 20230605
  Transmission Date: 20230722
  Serious: Yes (Other)
  Sender: FDA-Public Use
  Company Number: EG-002147023-NVSC2023EG104881

PATIENT
  Age: 42 Year
  Sex: Male

DRUGS (12)
  1. ENTRESTO [Suspect]
     Active Substance: SACUBITRIL\VALSARTAN
     Indication: Cardiac failure
     Dosage: 1 DOSAGE FORM, BID (50 MG) (START DATE WAS 21 MAY OR 24 MAY 2021, STOP DATE WAS 20 DAYS AGO (ALMOST
     Route: 048
     Dates: start: 202105, end: 20230413
  2. ENTRESTO [Suspect]
     Active Substance: SACUBITRIL\VALSARTAN
     Dosage: 1 DOSAGE FORM, BID (100 MG)
     Route: 048
     Dates: start: 20230502
  3. IVABRADINE HYDROCHLORIDE [Concomitant]
     Active Substance: IVABRADINE HYDROCHLORIDE
     Indication: Heart rate abnormal
     Dosage: 1 DOSAGE FORM, BID
     Route: 048
     Dates: start: 2021
  4. IVABRADINE [Concomitant]
     Active Substance: IVABRADINE
     Indication: Heart rate abnormal
     Dosage: 2 DOSAGE FORM, BID (ALTERNATIVE FOR CORALAN) (STOPPED 5 DAYS AGO)
     Route: 048
     Dates: start: 20230502
  5. IVABRADINE [Concomitant]
     Active Substance: IVABRADINE
     Dosage: 1 DOSAGE FORM, BID (STRENGTH 5 MG) (STARTED 5 DAYS AGO)
     Route: 065
  6. LANOXIN [Concomitant]
     Active Substance: DIGOXIN
     Indication: Product used for unknown indication
     Dosage: 0.5 DOSAGE FORM (HALF TABLET ON EMPTY STOMACH)
     Route: 048
     Dates: start: 2021
  7. PRADAXA [Concomitant]
     Active Substance: DABIGATRAN ETEXILATE MESYLATE
     Indication: Anticoagulant therapy
     Dosage: 2 DOSAGE FORM, QD (WOULD BE STOPPED ACCORDING  TO HCP DECISION AFTER FINISHING THE 4 TABLETS REMAINI
     Route: 048
     Dates: start: 2021
  8. JARDIANCE [Concomitant]
     Active Substance: EMPAGLIFLOZIN
     Indication: Diuretic therapy
     Dosage: 1 DOSAGE FORM, QD
     Route: 048
     Dates: start: 2021
  9. TORSEMIDE [Concomitant]
     Active Substance: TORSEMIDE
     Indication: Diuretic therapy
     Dosage: 2 DOSAGE FORM, BID (5 MG)
     Route: 048
  10. TORSEMIDE [Concomitant]
     Active Substance: TORSEMIDE
     Dosage: 1 DOSAGE FORM, QD (10 MG)
     Route: 048
     Dates: start: 2021
  11. CARVEDILOL [Concomitant]
     Active Substance: CARVEDILOL
     Indication: Heart rate abnormal
     Dosage: 0.5 DOSAGE FORM, QD (HALF TABLET ONCE DAILY THEN WOULD SHIFT TO ONE TABLET TWICE DAILY ACCORDING TO
     Route: 048
     Dates: start: 2021
  12. CARVEDILOL [Concomitant]
     Active Substance: CARVEDILOL
     Indication: Ejection fraction decreased

REACTIONS (15)
  - Cardiomyopathy [Unknown]
  - Hypertension [Recovered/Resolved]
  - Gait disturbance [Recovering/Resolving]
  - Dyspnoea exertional [Recovering/Resolving]
  - Insomnia [Recovering/Resolving]
  - Boredom [Recovering/Resolving]
  - Pollakiuria [Unknown]
  - Eye disorder [Unknown]
  - Ill-defined disorder [Recovered/Resolved]
  - Sleep disorder [Recovered/Resolved]
  - Dizziness [Recovered/Resolved]
  - Oedema [Recovered/Resolved]
  - Product availability issue [Unknown]
  - Product dispensing error [Unknown]
  - Drug ineffective [Unknown]

NARRATIVE: CASE EVENT DATE: 20230413
